FAERS Safety Report 8622130-0 (Version None)
Quarter: 2012Q3

REPORT INFORMATION
  Report Type: 
  Country: None (occurrence: None)
  Receive Date: 20120826
  Receipt Date: 20120206
  Transmission Date: 20120928
  Serious: No
  Sender: FDA-Public Use
  Company Number: US-009507513-2012SP030113

PATIENT

DRUGS (1)
  1. DR. SCHOLL'S FREEZE AWAY COMMON + PLANTAR WART REMOVER [Suspect]
     Indication: SKIN PAPILLOMA
     Dosage: UNK UNK, ONCE
     Route: 061
     Dates: start: 20120115

REACTIONS (1)
  - CHOKING SENSATION [None]
